FAERS Safety Report 4602221-1 (Version None)
Quarter: 2005Q2

REPORT INFORMATION
  Report Type: 
  Country: None (occurrence: None)
  Receive Date: 20050215
  Receipt Date: 20040224
  Transmission Date: 20051028
  Serious: Yes (Other)
  Sender: FDA-Public Use
  Company Number: 2004IM000371

PATIENT
  Age: 57 Year
  Sex: Male
  Weight: 102.0593 kg

DRUGS (10)
  1. ACTIMMUNE [Suspect]
     Indication: INTERSTITIAL LUNG DISEASE
     Dosage: 200 UG;TIW; SUBCUTANEOUS
     Route: 058
     Dates: start: 20040128, end: 20040309
  2. CELEBREX [Concomitant]
  3. ENDOCET [Concomitant]
  4. ADVAIR DISKUS 100/50 [Concomitant]
  5. ALBUTEROL [Concomitant]
  6. TESSALON [Concomitant]
  7. OXYGEN [Concomitant]
  8. NASACORT [Concomitant]
  9. ADVIL [Concomitant]
  10. ROBITUSSIN-DM [Concomitant]

REACTIONS (1)
  - THROMBOCYTOPENIA [None]
